FAERS Safety Report 6655177-4 (Version None)
Quarter: 2010Q1

REPORT INFORMATION
  Report Type: 
  Country: None (occurrence: None)
  Receive Date: 20100329
  Receipt Date: 20100323
  Transmission Date: 20100710
  Serious: Yes (Hospitalization)
  Sender: FDA-Public Use
  Company Number: JP-BAYER-200912123BYL

PATIENT
  Age: 75 Year
  Sex: Male
  Weight: 61 kg

DRUGS (7)
  1. NEXAVAR [Suspect]
     Indication: HEPATIC NEOPLASM MALIGNANT
     Dosage: TOTAL DAILY DOSE: 800 MG  UNIT DOSE: 200 MG
     Route: 048
     Dates: start: 20090611, end: 20090624
  2. NEXAVAR [Suspect]
     Dosage: UNIT DOSE: 200 MG
     Route: 048
     Dates: start: 20090625, end: 20090626
  3. NEXAVAR [Suspect]
     Dosage: UNIT DOSE: 200 MG
     Route: 048
     Dates: start: 20090810, end: 20091109
  4. MAGMITT [Suspect]
     Indication: CONSTIPATION
     Route: 048
     Dates: start: 20090620, end: 20090721
  5. CALSLOT [Concomitant]
     Dosage: SINCE BEFORE ADMINISTRATION
     Route: 048
  6. ALLOPURINOL [Concomitant]
     Dosage: SINCE BEFORE ADMINISTRATION
     Route: 048
  7. RHYTHMY [Concomitant]
     Dosage: SINCE BEFORE ADMINISTRATION
     Route: 048

REACTIONS (6)
  - CONSTIPATION [None]
  - DYSPHONIA [None]
  - ERYTHEMA MULTIFORME [None]
  - HEPATIC FUNCTION ABNORMAL [None]
  - PALMAR-PLANTAR ERYTHRODYSAESTHESIA SYNDROME [None]
  - PYREXIA [None]
